FAERS Safety Report 22190761 (Version 1)
Quarter: 2023Q2

REPORT INFORMATION
  Report Type: Spontaneous
  Country: US (occurrence: US)
  Receive Date: 20230410
  Receipt Date: 20230410
  Transmission Date: 20230722
  Serious: Yes (Other)
  Sender: FDA-Public Use
  Company Number: US-RECORDATI RARE DISEASE INC-2023001847

PATIENT
  Age: 47 Year
  Sex: Female

DRUGS (1)
  1. PANHEMATIN [Suspect]
     Active Substance: HEMIN
     Indication: Porphyria acute
     Dosage: UNK
     Route: 042

REACTIONS (1)
  - Pulmonary embolism [Unknown]
